FAERS Safety Report 10768711 (Version 1)
Quarter: 2015Q1

REPORT INFORMATION
  Report Type: Spontaneous
  Country: US (occurrence: US)
  Receive Date: 20150206
  Receipt Date: 20150206
  Transmission Date: 20150721
  Serious: No
  Sender: FDA-Public Use
  Company Number: US-GLAXOSMITHKLINE-A1065850A

PATIENT

DRUGS (11)
  1. BENLYSTA [Suspect]
     Active Substance: BELIMUMAB
     Indication: SYSTEMIC LUPUS ERYTHEMATOSUS
     Route: 042
     Dates: start: 2012
  2. PREDNISONE. [Concomitant]
     Active Substance: PREDNISONE
  3. NABUMETONE. [Concomitant]
     Active Substance: NABUMETONE
  4. TYLENOL [Concomitant]
     Active Substance: ACETAMINOPHEN
  5. LYRICA [Concomitant]
     Active Substance: PREGABALIN
  6. AMITRIPTYLINE [Concomitant]
     Active Substance: AMITRIPTYLINE
  7. PLAQUENIL [Concomitant]
     Active Substance: HYDROXYCHLOROQUINE SULFATE
  8. ALEVE [Concomitant]
     Active Substance: NAPROXEN SODIUM
  9. NEXIUM [Concomitant]
     Active Substance: ESOMEPRAZOLE MAGNESIUM
  10. UNKNOWN MEDICATION SOLUTION FOR INJECTION [Concomitant]
  11. ANTI-INFLAMMATORY SOLUTION FOR INJECTION [Concomitant]

REACTIONS (6)
  - Hypoaesthesia [Unknown]
  - Back pain [Unknown]
  - Dizziness [Unknown]
  - Sensory disturbance [Unknown]
  - Nasopharyngitis [Unknown]
  - Pain [Unknown]

NARRATIVE: CASE EVENT DATE: 2012
